FAERS Safety Report 4320692-5 (Version None)
Quarter: 2004Q1

REPORT INFORMATION
  Report Type: 
  Country: None (occurrence: None)
  Receive Date: 20040315
  Receipt Date: 20030903
  Transmission Date: 20041129
  Serious: Yes (Hospitalization, Other)
  Sender: FDA-Public Use
  Company Number: USA030946084

PATIENT
  Age: 55 Year
  Sex: Female
  Weight: 65 kg

DRUGS (2)
  1. GEMZAR [Suspect]
     Indication: MALIGNANT URINARY TRACT NEOPLASM
     Dosage: 1000 MG/M2
  2. CARBOPLATIN [Concomitant]

REACTIONS (8)
  - ANAEMIA [None]
  - HYPOTENSION [None]
  - LEUKOCYTOSIS [None]
  - PYREXIA [None]
  - RASH ERYTHEMATOUS [None]
  - RENAL FAILURE [None]
  - THROMBOCYTOPENIA [None]
  - WHITE BLOOD CELL COUNT DECREASED [None]
